FAERS Safety Report 10970445 (Version 1)
Quarter: 2015Q1

REPORT INFORMATION
  Report Type: Spontaneous
  Country: US (occurrence: None)
  Receive Date: 20150330
  Receipt Date: 20150330
  Transmission Date: 20150721
  Serious: Yes (Hospitalization)
  Sender: FDA-Public Use
  Company Number: None

PATIENT
  Age: 19 Year
  Sex: Female
  Weight: 47.63 kg

DRUGS (2)
  1. GENEERESS FE [Concomitant]
  2. CIPROFLAXIN 500 MG [Suspect]
     Active Substance: CIPROFLOXACIN
     Indication: URINARY TRACT INFECTION
     Route: 048
     Dates: start: 20141019, end: 20141021

REACTIONS (3)
  - Dyspnoea [None]
  - Heart rate increased [None]
  - Tachycardia [None]

NARRATIVE: CASE EVENT DATE: 20141026
